APPROVED DRUG PRODUCT: TERCONAZOLE
Active Ingredient: TERCONAZOLE
Strength: 0.4%
Dosage Form/Route: CREAM;VAGINAL
Application: A076712 | Product #001 | TE Code: AB
Applicant: FOUGERA PHARMACEUTICALS INC
Approved: Feb 18, 2005 | RLD: No | RS: No | Type: RX